FAERS Safety Report 10435715 (Version 6)
Quarter: 2014Q4

REPORT INFORMATION
  Report Type: Report from Study
  Country: CA (occurrence: CA)
  Receive Date: 20140908
  Receipt Date: 20141027
  Transmission Date: 20150528
  Serious: Yes (Hospitalization, Other)
  Sender: FDA-Public Use
  Company Number: CA-ROCHE-1089599

PATIENT
  Age: 62 Year
  Sex: Female
  Weight: 89.89 kg

DRUGS (9)
  1. AVASTIN [Suspect]
     Active Substance: BEVACIZUMAB
     Indication: OLIGOASTROCYTOMA
     Dosage: MOST RECENT BEVACIZUMAB DOSE WAS ON 23/JUL/2012.
     Route: 042
     Dates: start: 20120606, end: 20141003
  2. BENADRYL [Concomitant]
     Active Substance: DIPHENHYDRAMINE HYDROCHLORIDE
     Route: 048
     Dates: start: 20120606, end: 20141003
  3. SOLU-MEDROL [Concomitant]
     Active Substance: METHYLPREDNISOLONE SODIUM SUCCINATE
     Route: 042
     Dates: start: 20120606, end: 20141003
  4. DICLOFENAC [Concomitant]
     Active Substance: DICLOFENAC
     Route: 065
  5. BRICANYL [Concomitant]
     Active Substance: TERBUTALINE SULFATE
  6. DOCUSATE SODIUM. [Concomitant]
     Active Substance: DOCUSATE SODIUM
  7. PULMICORT TURBUHALER [Concomitant]
     Active Substance: BUDESONIDE
  8. LOMUSTINE. [Concomitant]
     Active Substance: LOMUSTINE
  9. FISH OIL [Concomitant]
     Active Substance: FISH OIL

REACTIONS (6)
  - Hypotension [Unknown]
  - Thrombosis [Unknown]
  - Joint swelling [Unknown]
  - Off label use [Unknown]
  - Malignant neoplasm progression [Unknown]
  - Nausea [Recovering/Resolving]

NARRATIVE: CASE EVENT DATE: 20120713
